FAERS Safety Report 8325187-X (Version None)
Quarter: 2012Q2

REPORT INFORMATION
  Report Type: 
  Country: None (occurrence: None)
  Receive Date: 20120427
  Receipt Date: 20120413
  Transmission Date: 20120825
  Serious: Yes (Death)
  Sender: FDA-Public Use
  Company Number: EU-2012-10125

PATIENT
  Sex: Female

DRUGS (3)
  1. SAMSCA [Suspect]
     Indication: HYPONATRAEMIA
     Dosage: 15 MG MILLIGRAM(S), DAILY DOSE, ORAL
     Route: 048
     Dates: start: 20120320, end: 20120321
  2. SAMSCA [Suspect]
     Indication: OFF LABEL USE
     Dosage: 15 MG MILLIGRAM(S), DAILY DOSE, ORAL
     Route: 048
     Dates: start: 20120320, end: 20120321
  3. SALINE (SALINE) [Concomitant]

REACTIONS (3)
  - URINARY TRACT INFECTION [None]
  - UROSEPSIS [None]
  - GLOMERULAR FILTRATION RATE DECREASED [None]
